FAERS Safety Report 10683563 (Version 2)
Quarter: 2015Q1

REPORT INFORMATION
  Report Type: Spontaneous
  Country: US (occurrence: US)
  Receive Date: 20141230
  Receipt Date: 20150206
  Transmission Date: 20150720
  Serious: No
  Sender: FDA-Public Use
  Company Number: US-GLAXOSMITHKLINE-US2014GSK044070

PATIENT
  Sex: Female

DRUGS (2)
  1. VOTRIENT [Suspect]
     Active Substance: PAZOPANIB HYDROCHLORIDE
     Indication: UTERINE CANCER
     Dosage: 800 MG, QD
     Route: 065
     Dates: start: 20141012
  2. VOTRIENT [Suspect]
     Active Substance: PAZOPANIB HYDROCHLORIDE
     Dosage: 200 MG, U
     Dates: start: 20141011, end: 20141128

REACTIONS (4)
  - Contusion [Unknown]
  - Constipation [Unknown]
  - Migraine [Unknown]
  - Vision blurred [Unknown]
